FAERS Safety Report 10884348 (Version 1)
Quarter: 2015Q1

REPORT INFORMATION
  Report Type: Spontaneous
  Country: NL (occurrence: None)
  Receive Date: 20150226
  Receipt Date: 20150226
  Transmission Date: 20150721
  Serious: Yes (Other)
  Sender: FDA-Public Use
  Company Number: None

PATIENT
  Sex: Male

DRUGS (1)
  1. ELIGARD [Suspect]
     Active Substance: LEUPROLIDE ACETATE
     Dosage: ONCE EVERY 6 MONTHS
     Dates: start: 20130823

REACTIONS (4)
  - Drug ineffective [None]
  - Cerebral infarction [None]
  - Memory impairment [None]
  - Blood potassium abnormal [None]

NARRATIVE: CASE EVENT DATE: 2013
